FAERS Safety Report 8189978-0 (Version None)
Quarter: 2012Q1

REPORT INFORMATION
  Report Type: 
  Country: None (occurrence: None)
  Receive Date: 20120307
  Receipt Date: 20120223
  Transmission Date: 20120608
  Serious: Yes (Other)
  Sender: FDA-Public Use
  Company Number: BR-AMGEN-BRASP2012012821

PATIENT
  Age: 56 Year
  Sex: Female
  Weight: 67 kg

DRUGS (1)
  1. ENBREL [Suspect]
     Indication: RHEUMATOID ARTHRITIS
     Dosage: 50 MG, WEEKLY
     Route: 058
     Dates: start: 20101116, end: 20111201

REACTIONS (3)
  - LUNG NEOPLASM MALIGNANT [None]
  - IMMUNE SYSTEM DISORDER [None]
  - ARTHRITIS [None]
